FAERS Safety Report 6766780-5 (Version None)
Quarter: 2010Q2

REPORT INFORMATION
  Report Type: 
  Country: None (occurrence: None)
  Receive Date: 20100611
  Receipt Date: 20100601
  Transmission Date: 20101027
  Serious: Yes (Hospitalization, Other)
  Sender: FDA-Public Use
  Company Number: FR-ELI_LILLY_AND_COMPANY-FR201006000035

PATIENT
  Sex: Male

DRUGS (4)
  1. ZYPREXA [Suspect]
     Dosage: 10 MG, DAILY (1/D)
     Route: 048
  2. TERALITHE [Concomitant]
     Dosage: 1.5 D/F, DAILY (1/D)
     Route: 048
  3. LEPTICUR [Concomitant]
     Dosage: 10 MG, DAILY (1/D)
     Route: 048
  4. EFFEXOR [Concomitant]
     Dosage: 75 MG, DAILY (1/D)
     Route: 048

REACTIONS (3)
  - ACUTE MYELOID LEUKAEMIA [None]
  - LEUKOPENIA [None]
  - NEUTROPENIA [None]
